FAERS Safety Report 8033813-8 (Version None)
Quarter: 2012Q1

REPORT INFORMATION
  Report Type: 
  Country: None (occurrence: None)
  Receive Date: 20120110
  Receipt Date: 20120102
  Transmission Date: 20120608
  Serious: Yes (Other)
  Sender: FDA-Public Use
  Company Number: HU-AMGEN-HUNSP2012000032

PATIENT
  Age: 35 Year
  Sex: Female
  Weight: 54 kg

DRUGS (1)
  1. ARANESP [Suspect]
     Indication: RENAL FAILURE CHRONIC
     Dosage: 60 MUG, QWK
     Route: 058
     Dates: start: 20070101, end: 20111001

REACTIONS (3)
  - THERAPEUTIC RESPONSE DECREASED [None]
  - HEPATOSPLENOMEGALY [None]
  - OVARIAN CYST [None]
